FAERS Safety Report 5848714-0 (Version None)
Quarter: 2008Q3

REPORT INFORMATION
  Report Type: 
  Country: None (occurrence: None)
  Receive Date: 20080818
  Receipt Date: 20080812
  Transmission Date: 20090109
  Serious: No
  Sender: FDA-Public Use
  Company Number: US-BOEHRINGER INGELHEIM GMBH, GERMANY-2008-BP-12677BP

PATIENT
  Age: 66 Year
  Sex: Female

DRUGS (4)
  1. MICARDIS [Suspect]
     Indication: DIABETES PROPHYLAXIS
     Route: 048
     Dates: start: 20080805
  2. GLUCOPHAGE [Concomitant]
     Indication: TYPE 2 DIABETES MELLITUS
  3. ASPIRIN [Concomitant]
     Indication: CARDIAC DISORDER
  4. ALLEGRA [Concomitant]
     Indication: HYPERSENSITIVITY

REACTIONS (1)
  - DIZZINESS [None]
